FAERS Safety Report 9218128 (Version 2)
Quarter: 2013Q3

REPORT INFORMATION
  Report Type: Spontaneous
  Country: US (occurrence: US)
  Receive Date: 20130408
  Receipt Date: 20130722
  Transmission Date: 20140515
  Serious: Yes (Death, Life-Threatening, Hospitalization, Other)
  Sender: FDA-Public Use
  Company Number: US-TARO-2013P1004312

PATIENT
  Age: 60 Year
  Sex: Female
  Weight: 80.91 kg

DRUGS (19)
  1. WARFARIN SODIUM TABLETS USP 5MG [Suspect]
     Route: 048
     Dates: start: 201210
  2. WARFARIN SODIUM TABLETS USP 5MG [Suspect]
     Indication: DEEP VEIN THROMBOSIS
     Route: 048
     Dates: start: 201210
  3. MICONAZOLE 2% [Concomitant]
     Route: 061
  4. TESSALON PERLES [Concomitant]
     Route: 048
  5. VISTARIL [Concomitant]
     Route: 048
  6. DUONEB [Concomitant]
     Route: 055
  7. DUONEB [Concomitant]
     Route: 055
  8. XANADERM [Concomitant]
     Route: 061
  9. METOPROLOL SUCCINATE XL [Concomitant]
     Route: 048
  10. LASIX [Concomitant]
     Route: 048
  11. FLOMAX [Concomitant]
     Route: 048
  12. FERROUS SULFATE [Concomitant]
     Route: 048
  13. CLARITIN (LORATADINE) [Concomitant]
     Route: 048
  14. ASPIRIN [Concomitant]
     Route: 048
  15. TYLENOL (ACETAMINOPHEN) [Concomitant]
     Route: 048
  16. NORCO 5 MG/325 MG [Concomitant]
     Route: 048
  17. LEVEMIR [Concomitant]
     Route: 058
  18. HUMALOG [Concomitant]
     Route: 058
  19. ALBUTEROL [Concomitant]

REACTIONS (52)
  - Upper gastrointestinal haemorrhage [Fatal]
  - International normalised ratio increased [Unknown]
  - Product quality issue [Unknown]
  - Diabetes mellitus inadequate control [Fatal]
  - Clostridium difficile colitis [Unknown]
  - Skin ulcer [Unknown]
  - Cough [Unknown]
  - Gangrene [Unknown]
  - Osteomyelitis [Unknown]
  - Anaemia [Unknown]
  - Haematuria [Unknown]
  - Gastroenteritis [Unknown]
  - Breath sounds abnormal [Unknown]
  - Rhonchi [Unknown]
  - Coordination abnormal [Unknown]
  - Disorientation [Unknown]
  - Cardiomegaly [Unknown]
  - Cardiac failure congestive [Fatal]
  - Hypertension [Unknown]
  - Diastolic dysfunction [Unknown]
  - Pulmonary hypertension [Unknown]
  - Haemoglobin decreased [Unknown]
  - Blood potassium increased [Unknown]
  - Respiratory distress [Unknown]
  - Cardio-respiratory arrest [Fatal]
  - Mitral valve calcification [Unknown]
  - Pyelocaliectasis [Unknown]
  - Arteriosclerosis [Unknown]
  - Aortic disorder [Unknown]
  - Pulmonary alveolar haemorrhage [Unknown]
  - Pulmonary oedema [Unknown]
  - Hepatic steatosis [Unknown]
  - Hepatic necrosis [Unknown]
  - Erosive oesophagitis [Unknown]
  - Abdominal wall haematoma [Unknown]
  - Intercapillary glomerulosclerosis [Unknown]
  - Tracheal inflammation [Unknown]
  - Blood creatinine increased [Unknown]
  - Pleural effusion [Unknown]
  - Ascites [Unknown]
  - Splenomegaly [Unknown]
  - Hepatic congestion [Unknown]
  - Bronchitis chronic [Unknown]
  - Cholestasis [Unknown]
  - Fluid overload [Unknown]
  - Pulmonary congestion [Unknown]
  - Nephrolithiasis [Unknown]
  - Cerebral disorder [Unknown]
  - Appendicectomy [Unknown]
  - Coagulopathy [Fatal]
  - Pericardial effusion [Fatal]
  - Pallor [Unknown]
